FAERS Safety Report 10210765 (Version 3)
Quarter: 2014Q2

REPORT INFORMATION
  Report Type: Spontaneous
  Country: US (occurrence: US)
  Receive Date: 20140602
  Receipt Date: 20140616
  Transmission Date: 20141212
  Serious: No
  Sender: FDA-Public Use
  Company Number: US-009507513-1405USA015683

PATIENT
  Age: 31 Year
  Sex: Female
  Weight: 91.61 kg

DRUGS (2)
  1. NEXPLANON [Suspect]
     Indication: CONTRACEPTION
     Dosage: 1 IMPLANT, LEFT ARM
     Route: 059
     Dates: start: 201310
  2. METOPROLOL [Concomitant]

REACTIONS (3)
  - Unintended pregnancy [Unknown]
  - Medical device complication [Unknown]
  - Drug dose omission [Unknown]
